FAERS Safety Report 24395440 (Version 3)
Quarter: 2024Q4

REPORT INFORMATION
  Report Type: Spontaneous
  Country: CZ (occurrence: CZ)
  Receive Date: 20241004
  Receipt Date: 20241112
  Transmission Date: 20250115
  Serious: Yes (Other)
  Sender: AUROBINDO
  Company Number: CZ-BAXTER-2024BAX024532

PATIENT
  Age: 44 Year
  Sex: Male

DRUGS (33)
  1. ACETAMINOPHEN [Suspect]
     Active Substance: ACETAMINOPHEN
     Indication: Hodgkin^s disease refractory
     Dosage: UNK, 5XR-CHOEP REGIMEN
     Route: 065
  2. ACETAMINOPHEN [Suspect]
     Active Substance: ACETAMINOPHEN
     Indication: Hodgkin^s disease recurrent
  3. BRENTUXIMAB VEDOTIN [Suspect]
     Active Substance: BRENTUXIMAB VEDOTIN
     Indication: Hodgkin^s disease refractory
     Dosage: UNK
     Route: 065
  4. BRENTUXIMAB VEDOTIN [Suspect]
     Active Substance: BRENTUXIMAB VEDOTIN
     Indication: Hodgkin^s disease
  5. CYTARABINE [Suspect]
     Active Substance: CYTARABINE
     Indication: Hodgkin^s disease recurrent
     Dosage: UNK, 1XR-DHAP, 1XR-DHAOX REGIMEN
     Route: 065
  6. CYTARABINE [Suspect]
     Active Substance: CYTARABINE
     Indication: Hodgkin^s disease
  7. CYCLOPHOSPHAMIDE [Suspect]
     Active Substance: CYCLOPHOSPHAMIDE
     Indication: Hodgkin^s disease refractory
     Dosage: UNK, 1XR-CHOP REGIMEN
     Route: 065
  8. CYCLOPHOSPHAMIDE [Suspect]
     Active Substance: CYCLOPHOSPHAMIDE
     Indication: Hodgkin^s disease
  9. CISPLATIN [Suspect]
     Active Substance: CISPLATIN
     Indication: Hodgkin^s disease recurrent
     Dosage: UNK, 1XR-DHAP REGIMEN
     Route: 065
  10. CISPLATIN [Suspect]
     Active Substance: CISPLATIN
     Indication: Hodgkin^s disease
  11. DOXORUBICIN [Suspect]
     Active Substance: DOXORUBICIN
     Indication: Hodgkin^s disease refractory
     Dosage: UNK, 1XR-CHOP REGIMEN
     Route: 065
  12. DOXORUBICIN [Suspect]
     Active Substance: DOXORUBICIN
     Indication: Hodgkin^s disease
  13. DEXAMETHASONE [Suspect]
     Active Substance: DEXAMETHASONE
     Indication: Hodgkin^s disease refractory
     Dosage: UNK, 1XR-DHAP, 1XR-DHAOX REGIMEN
     Route: 065
  14. DEXAMETHASONE [Suspect]
     Active Substance: DEXAMETHASONE
     Indication: Hodgkin^s disease
  15. GENTAMICIN [Suspect]
     Active Substance: GENTAMICIN
     Indication: Hodgkin^s disease recurrent
     Dosage: UNK, 2XIGEV REGIMEN
     Route: 065
  16. GENTAMICIN [Suspect]
     Active Substance: GENTAMICIN
     Indication: Hodgkin^s disease
  17. IFOSFAMIDE [Suspect]
     Active Substance: IFOSFAMIDE
     Indication: Hodgkin^s disease refractory
     Dosage: UNK, 2XIGEV REGIMEN
     Route: 065
  18. IFOSFAMIDE [Suspect]
     Active Substance: IFOSFAMIDE
     Indication: Hodgkin^s disease
  19. LORATADINE [Suspect]
     Active Substance: LORATADINE
     Indication: Hodgkin^s disease refractory
     Dosage: UNK, 5XR-CHOEP REGIMEN
     Route: 065
  20. LORATADINE [Suspect]
     Active Substance: LORATADINE
     Indication: Hodgkin^s disease
  21. OXALIPLATIN [Suspect]
     Active Substance: OXALIPLATIN
     Indication: Hodgkin^s disease recurrent
     Dosage: UNK, 1XR-DHAOX REGIMEN
     Route: 065
  22. OXALIPLATIN [Suspect]
     Active Substance: OXALIPLATIN
     Indication: Hodgkin^s disease
  23. PREDNISONE [Suspect]
     Active Substance: PREDNISONE
     Indication: Hodgkin^s disease refractory
     Dosage: UNK, 1XR-CHOP, 5XR-CHOEP, 2XIGEV REGIMEN
     Route: 065
  24. PREDNISONE [Suspect]
     Active Substance: PREDNISONE
     Indication: Hodgkin^s disease
  25. RITUXIMAB [Suspect]
     Active Substance: RITUXIMAB
     Indication: Hodgkin^s disease recurrent
     Dosage: UNK, 1XR-CHOP, 5XR-CHOEP, 1XR-DHAP, 1XR-DHAOX REGIMEN
     Route: 065
  26. RITUXIMAB [Suspect]
     Active Substance: RITUXIMAB
     Indication: Hodgkin^s disease
  27. VINCRISTINE [Suspect]
     Active Substance: VINCRISTINE
     Indication: Hodgkin^s disease refractory
     Dosage: UNK, 1XR-CHOP REGIMEN
     Route: 065
  28. VINCRISTINE [Suspect]
     Active Substance: VINCRISTINE
     Indication: Hodgkin^s disease
  29. VINORELBINE [Suspect]
     Active Substance: VINORELBINE TARTRATE
     Indication: Hodgkin^s disease refractory
     Dosage: UNK, 2XIGEV REGIMEN
     Route: 065
  30. VINORELBINE [Suspect]
     Active Substance: VINORELBINE TARTRATE
     Indication: Hodgkin^s disease
  31. ETOPOSIDE [Suspect]
     Active Substance: ETOPOSIDE
     Indication: Product used for unknown indication
     Dosage: UNK
     Route: 065
  32. PEMBROLIZUMAB [Suspect]
     Active Substance: PEMBROLIZUMAB
     Indication: Product used for unknown indication
     Dosage: UNK
     Route: 065
  33. GEMCITABINE [Suspect]
     Active Substance: GEMCITABINE
     Indication: Product used for unknown indication
     Dosage: UNK
     Route: 065

REACTIONS (13)
  - Disease progression [Unknown]
  - Nephropathy toxic [Unknown]
  - Haematopoietic stem cell mobilisation [Unknown]
  - Night sweats [Unknown]
  - Peripheral blood stem cell apheresis [Unknown]
  - Pyrexia [Unknown]
  - Hodgkin^s disease [Unknown]
  - Neoplasm progression [Unknown]
  - Haemoglobin abnormal [Unknown]
  - Blood lactate dehydrogenase abnormal [Unknown]
  - White blood cell count abnormal [Unknown]
  - Platelet count abnormal [Unknown]
  - C-reactive protein abnormal [Unknown]

NARRATIVE: CASE EVENT DATE: 20200101
